FAERS Safety Report 10934892 (Version 3)
Quarter: 2015Q2

REPORT INFORMATION
  Report Type: Spontaneous
  Country: US (occurrence: US)
  Receive Date: 20150320
  Receipt Date: 20150414
  Transmission Date: 20150821
  Serious: Yes (Hospitalization)
  Sender: FDA-Public Use
  Company Number: US-PFIZER INC-2015095597

PATIENT
  Age: 55 Year
  Sex: Male
  Weight: 79 kg

DRUGS (1)
  1. CHANTIX [Suspect]
     Active Substance: VARENICLINE TARTRATE
     Indication: SMOKING CESSATION THERAPY
     Dosage: UNK, 2X/DAY (ONE IN THE MORNING AND ONE IN THE EVENING)
     Dates: start: 200708, end: 200712

REACTIONS (5)
  - Abnormal dreams [Recovered/Resolved]
  - Dysgeusia [Recovered/Resolved]
  - Weight increased [Recovered/Resolved]
  - Carotid artery occlusion [Recovered/Resolved]
  - Depression [Recovered/Resolved]

NARRATIVE: CASE EVENT DATE: 2007
